FAERS Safety Report 10625400 (Version 2)
Quarter: 2014Q4

REPORT INFORMATION
  Report Type: Report from Study
  Country: US (occurrence: US)
  Receive Date: 20141204
  Receipt Date: 20141204
  Transmission Date: 20150529
  Serious: Yes (Hospitalization, Other)
  Sender: FDA-Public Use
  Company Number: US-BRISTOL-MYERS SQUIBB COMPANY-21574207

PATIENT
  Age: 72 Year
  Sex: Female

DRUGS (4)
  1. SPIRIVA [Suspect]
     Active Substance: TIOTROPIUM BROMIDE MONOHYDRATE
     Indication: CHRONIC OBSTRUCTIVE PULMONARY DISEASE
  2. PLAVIX [Suspect]
     Active Substance: CLOPIDOGREL BISULFATE
  3. COUMADIN [Suspect]
     Active Substance: WARFARIN SODIUM
  4. VENTOLIN [Suspect]
     Active Substance: ALBUTEROL SULFATE
     Indication: CHRONIC OBSTRUCTIVE PULMONARY DISEASE

REACTIONS (17)
  - Facial pain [Unknown]
  - Abdominal distension [Unknown]
  - Pain in extremity [Unknown]
  - Transient ischaemic attack [Unknown]
  - Apnoea [Unknown]
  - Nightmare [Unknown]
  - Catheterisation cardiac [Unknown]
  - Aneurysm [Unknown]
  - Infection [Unknown]
  - Sinus operation [Unknown]
  - Ill-defined disorder [Unknown]
  - Heart rate increased [Unknown]
  - Arteriosclerosis [Unknown]
  - Chest discomfort [Unknown]
  - Cardiac disorder [Unknown]
  - Vitamin B12 decreased [Unknown]
  - Back pain [Unknown]
